FAERS Safety Report 4366833-5 (Version None)
Quarter: 2004Q2

REPORT INFORMATION
  Report Type: 
  Country: None (occurrence: None)
  Receive Date: 20040528
  Receipt Date: 20030709
  Transmission Date: 20050107
  Serious: No
  Sender: FDA-Public Use
  Company Number: US-GLAXOSMITHKLINE-A0415861A

PATIENT
  Age: 66 Year
  Sex: Male

DRUGS (1)
  1. BACTROBAN [Suspect]
     Route: 061
     Dates: start: 20030707, end: 20030707

REACTIONS (4)
  - BURNING SENSATION [None]
  - ERYTHEMA [None]
  - INFLAMMATION [None]
  - SWELLING [None]
